FAERS Safety Report 5581863-3 (Version None)
Quarter: 2008Q1

REPORT INFORMATION
  Report Type: 
  Country: None (occurrence: None)
  Receive Date: 20080104
  Receipt Date: 20071227
  Transmission Date: 20080703
  Serious: Yes (Hospitalization)
  Sender: FDA-Public Use
  Company Number: FR-ELI_LILLY_AND_COMPANY-FR200712002677

PATIENT
  Age: 70 Year
  Sex: Female
  Weight: 43 kg

DRUGS (2)
  1. FORTEO [Suspect]
     Indication: OSTEOPOROSIS
     Dosage: 20 UG, DAILY (1/D)
     Route: 058
     Dates: start: 20070722, end: 20071011
  2. DURAGESIC-100 [Concomitant]
     Dates: end: 20070801

REACTIONS (1)
  - NON-HODGKIN'S LYMPHOMA [None]
